FAERS Safety Report 6643836-9 (Version None)
Quarter: 2010Q1

REPORT INFORMATION
  Report Type: 
  Country: None (occurrence: None)
  Receive Date: 20100322
  Receipt Date: 20100311
  Transmission Date: 20100710
  Serious: Yes (Other)
  Sender: FDA-Public Use
  Company Number: US-JNJFOC-20100304001

PATIENT
  Sex: Female

DRUGS (10)
  1. LEVAQUIN [Suspect]
     Indication: SINUSITIS
     Route: 048
  2. NIASPAN [Suspect]
     Indication: BLOOD TRIGLYCERIDES INCREASED
     Route: 048
  3. OMEGA-3 MARINE TRIGLYCERIDES [Concomitant]
     Route: 065
  4. ANTACID TAB [Concomitant]
     Route: 065
  5. LETROZOLE [Concomitant]
     Route: 065
  6. M.V.I. [Concomitant]
     Route: 065
  7. OTHER THERAPEUTIC PRODUCTS [Concomitant]
     Route: 065
  8. TPN [Concomitant]
     Route: 065
  9. CALCIUM [Concomitant]
     Route: 065
  10. ACETYLSALICYLIC ACID SRT [Concomitant]
     Route: 065

REACTIONS (5)
  - FLUSHING [None]
  - GENERALISED OEDEMA [None]
  - PARAESTHESIA [None]
  - PRURITUS [None]
  - TRANSIENT ISCHAEMIC ATTACK [None]
